FAERS Safety Report 15387644 (Version 1)
Quarter: 2018Q3

REPORT INFORMATION
  Report Type: Report from Study
  Country: US (occurrence: US)
  Receive Date: 20180914
  Receipt Date: 20180914
  Transmission Date: 20181010
  Serious: Yes (Death, Hospitalization, Other)
  Sender: FDA-Public Use
  Company Number: US-TAKEDA-2018MPI010166

PATIENT
  Age: 66 Year
  Sex: Female

DRUGS (1)
  1. BORTEZOMIB. [Suspect]
     Active Substance: BORTEZOMIB
     Indication: PLASMA CELL MYELOMA
     Dosage: UNK
     Route: 058
     Dates: start: 201407

REACTIONS (3)
  - Pulmonary embolism [Recovering/Resolving]
  - Death [Fatal]
  - Thrombosis [Recovering/Resolving]

NARRATIVE: CASE EVENT DATE: 20180910
